FAERS Safety Report 16692692 (Version 1)
Quarter: 2019Q3

REPORT INFORMATION
  Report Type: Spontaneous
  Country: US (occurrence: US)
  Receive Date: 20190625
  Receipt Date: 20190625
  Transmission Date: 20191004
  Serious: Yes (Hospitalization)
  Sender: FDA-Public Use
  Company Number: None

PATIENT
  Age: 37 Year
  Sex: Female

DRUGS (3)
  1. PRENATAL TABLET [Concomitant]
     Active Substance: VITAMINS
  2. PROGESTERONE 50MG/ML [Suspect]
     Active Substance: PROGESTERONE
     Indication: INFERTILITY
     Dosage: 31/APR/2019 TO ONGOING
     Route: 030
  3. CO-Q 10 [Concomitant]
     Active Substance: UBIDECARENONE

REACTIONS (1)
  - Injection site irritation [None]

NARRATIVE: CASE EVENT DATE: 201903
